FAERS Safety Report 18533855 (Version 1)
Quarter: 2020Q4

REPORT INFORMATION
  Report Type: Spontaneous
  Country: US (occurrence: US)
  Receive Date: 20201121
  Receipt Date: 20201121
  Transmission Date: 20210114
  Serious: Yes (Disabling, Other)
  Sender: FDA-Public Use
  Company Number: None

PATIENT
  Age: 28 Year
  Sex: Female
  Weight: 103.42 kg

DRUGS (9)
  1. WOMEN^S ONE A DAY MULTIVITAMIN [Concomitant]
  2. TOPIRAMATE. [Concomitant]
     Active Substance: TOPIRAMATE
  3. ESCITALOPRAM [Concomitant]
     Active Substance: ESCITALOPRAM OXALATE
  4. DIPHENHYDRAMINE HCL [Concomitant]
     Active Substance: DIPHENHYDRAMINE HYDROCHLORIDE
  5. NEXPLANON [Suspect]
     Active Substance: ETONOGESTREL
     Dates: start: 20170918
  6. GINSENG [Concomitant]
     Active Substance: ASIAN GINSENG
  7. APPLE CIDER VINEGAR [Concomitant]
     Active Substance: APPLE CIDER VINEGAR
  8. VITAMIN E [Concomitant]
     Active Substance: .ALPHA.-TOCOPHEROL
  9. FLUTICASONE PROPIONATE/SALMETEROL [Concomitant]
     Active Substance: FLUTICASONE PROPIONATE\SALMETEROL XINAFOATE

REACTIONS (5)
  - Pain [None]
  - Monoparesis [None]
  - Influenza like illness [None]
  - Complication of device removal [None]
  - Weight decreased [None]

NARRATIVE: CASE EVENT DATE: 20200918
